FAERS Safety Report 19415638 (Version 1)
Quarter: 2021Q2

REPORT INFORMATION
  Report Type: Spontaneous
  Country: US (occurrence: US)
  Receive Date: 20210615
  Receipt Date: 20210615
  Transmission Date: 20210717
  Serious: No
  Sender: FDA-Public Use
  Company Number: US-ALLERGAN-2117279US

PATIENT

DRUGS (2)
  1. KYBELLA [Suspect]
     Active Substance: DEOXYCHOLIC ACID
     Indication: SKIN COSMETIC PROCEDURE
     Dosage: UNK UNK, SINGLE
     Dates: start: 202010, end: 202010
  2. KYBELLA [Suspect]
     Active Substance: DEOXYCHOLIC ACID
     Dosage: UNK UNK, SINGLE
     Dates: start: 202006, end: 202006

REACTIONS (2)
  - Condition aggravated [Unknown]
  - Administration site induration [Unknown]
